FAERS Safety Report 10273439 (Version 1)
Quarter: 2014Q2

REPORT INFORMATION
  Report Type: Spontaneous
  Country: US (occurrence: None)
  Receive Date: 20140630
  Receipt Date: 20140630
  Transmission Date: 20141212
  Serious: Yes (Disabling, Other)
  Sender: FDA-Public Use
  Company Number: None

PATIENT
  Age: 48 Year
  Sex: Female
  Weight: 76.2 kg

DRUGS (1)
  1. LIOTHYRONINE SODIUM [Suspect]
     Indication: HYPOTHYROIDISM
     Dosage: 1  1/2 DAILY?ONCE DAILY?TAKEN BY MOUTH
     Route: 048
     Dates: start: 20131201, end: 20140626

REACTIONS (8)
  - Weight increased [None]
  - Hypothyroidism [None]
  - Condition aggravated [None]
  - Product substitution issue [None]
  - Depression [None]
  - Drug ineffective [None]
  - Food allergy [None]
  - Product physical issue [None]
